FAERS Safety Report 7734798 (Version 3)
Quarter: 2013Q1

REPORT INFORMATION
  Report Type: Spontaneous
  Country: US (occurrence: US)
  Receive Date: 20101223
  Receipt Date: 20130115
  Transmission Date: 20140127
  Serious: Yes (Hospitalization, Other)
  Sender: FDA-Public Use
  Company Number: US-BAYER-2010-003364

PATIENT
  Age: 40 Year
  Sex: Female
  Weight: 55.32 kg

DRUGS (25)
  1. YAZ [Suspect]
     Indication: OVARIAN CYST
     Dosage: 1 DF, QD
     Route: 048
     Dates: start: 20081222, end: 20090106
  2. CIPROFLOXACIN [Concomitant]
     Dosage: UNK
     Dates: start: 20081214, end: 20081220
  3. LYRICA [Concomitant]
  4. MOTRIN [Concomitant]
     Dosage: UNK
     Dates: start: 200811
  5. NEURONTIN [Concomitant]
     Indication: NEURALGIA
     Dosage: 300 MG, QD
     Dates: start: 200812
  6. PHENERGAN [Concomitant]
  7. NAPROSYN [Concomitant]
     Dosage: UNK
     Dates: start: 200810
  8. SUDAFED [Concomitant]
  9. SKELAXIN [Concomitant]
     Dosage: 800 MG, PRN
  10. ULTRAM [Concomitant]
     Dosage: 50 MG, UNK
  11. ZESTRIL [Concomitant]
     Dosage: 5 MG, QD
     Dates: start: 200905, end: 200906
  12. ONDASETRON [Concomitant]
     Dosage: 4 MG, UNK
  13. LEXAPRO [Concomitant]
     Indication: DEPRESSION
     Dosage: 20 MG, QD
     Dates: start: 2005
  14. TRIMETHOPRIM [Concomitant]
  15. CLONAZEPAM [Concomitant]
     Dosage: UNK
     Dates: start: 201010
  16. LISINOPRIL HYDROCHLORTHIAZID [Concomitant]
     Dosage: UNK
     Dates: start: 200905, end: 200906
  17. LORAZEPAM [Concomitant]
     Dosage: 0.5 MG, PRN
  18. LOPRESSOR [Concomitant]
     Dosage: UNK
     Dates: start: 200901
  19. HYDROCHLOROTHIAZIDE [Concomitant]
     Dosage: UNK
     Dates: start: 200901, end: 200902
  20. MORPHINE [Concomitant]
  21. FISH OIL [Concomitant]
  22. PHENAZOPYRIDINE HYDROCHLORIDE [Concomitant]
     Dosage: 200 MG, UNK
  23. VITAMIN B12 [Concomitant]
     Dosage: 1000 MCG/ML, UNK
     Dates: start: 20091017
  24. LEVAQUIN [Concomitant]
     Dosage: 500 MG, UNK
  25. HYOSCYAMINE SULFATE [Concomitant]
     Dosage: 0.125 MG, UNK
     Route: 060

REACTIONS (10)
  - Pulmonary embolism [Recovered/Resolved]
  - Pulmonary embolism [None]
  - Haemorrhage [None]
  - Anaemia [None]
  - Hypertension [None]
  - Contusion [None]
  - Injury [Recovered/Resolved]
  - Pain [Recovered/Resolved]
  - Nausea [Recovered/Resolved]
  - Off label use [None]
